FAERS Safety Report 12987356 (Version 3)
Quarter: 2016Q4

REPORT INFORMATION
  Report Type: Spontaneous
  Country: JP (occurrence: JP)
  Receive Date: 20161130
  Receipt Date: 20161219
  Transmission Date: 20170207
  Serious: Yes (Death, Life-Threatening)
  Sender: FDA-Public Use
  Company Number: JP-ASTRAZENECA-2016SF26704

PATIENT
  Age: 579 Month
  Sex: Female
  Weight: 106 kg

DRUGS (12)
  1. LORATADINE. [Concomitant]
     Active Substance: LORATADINE
     Route: 048
     Dates: end: 20161113
  2. TRESIBA [Concomitant]
     Active Substance: INSULIN DEGLUDEC
     Indication: TYPE 2 DIABETES MELLITUS
     Route: 058
     Dates: start: 20161019, end: 20161113
  3. URSODEOXYCHOLIC ACID [Concomitant]
     Active Substance: URSODIOL
     Route: 048
     Dates: end: 20161113
  4. HALCION [Concomitant]
     Active Substance: TRIAZOLAM
     Indication: BIPOLAR I DISORDER
     Route: 048
     Dates: end: 20161113
  5. ONGLYZA [Suspect]
     Active Substance: SAXAGLIPTIN HYDROCHLORIDE
     Indication: TYPE 2 DIABETES MELLITUS
     Route: 048
     Dates: start: 20161027, end: 20161113
  6. HIRNAMIN [Concomitant]
     Active Substance: PHENOTHIAZINE
     Indication: BIPOLAR I DISORDER
     Dosage: FOUR TIMES A DAY
     Route: 048
     Dates: end: 20161113
  7. CONTOMIN [Concomitant]
     Active Substance: CHLORPROMAZINE
     Indication: BIPOLAR I DISORDER
     Route: 048
     Dates: end: 20161113
  8. ROHYPNOL [Concomitant]
     Active Substance: FLUNITRAZEPAM
     Indication: BIPOLAR I DISORDER
     Dosage: TWO TIMES A DAY
     Route: 048
     Dates: end: 20161113
  9. THEOPHYLLINE [Concomitant]
     Active Substance: THEOPHYLLINE ANHYDROUS
     Indication: ASTHMA
     Route: 048
     Dates: end: 20161113
  10. LIMAS [Concomitant]
     Active Substance: LITHIUM CARBONATE
     Indication: BIPOLAR I DISORDER
     Route: 048
     Dates: end: 20161113
  11. LEXOTAN [Concomitant]
     Active Substance: BROMAZEPAM
     Indication: BIPOLAR I DISORDER
     Route: 048
     Dates: end: 20161113
  12. RIVOTRIL [Concomitant]
     Active Substance: CLONAZEPAM
     Indication: BIPOLAR I DISORDER
     Route: 048
     Dates: end: 20161113

REACTIONS (3)
  - Cardio-respiratory arrest [Unknown]
  - Asthma [Fatal]
  - Hypoxic-ischaemic encephalopathy [Fatal]

NARRATIVE: CASE EVENT DATE: 20161113
